FAERS Safety Report 6317829-5 (Version None)
Quarter: 2009Q3

REPORT INFORMATION
  Report Type: 
  Country: None (occurrence: None)
  Receive Date: 20090821
  Receipt Date: 20090603
  Transmission Date: 20100115
  Serious: No
  Sender: FDA-Public Use
  Company Number: US-BAYER-200922745NA

PATIENT
  Sex: Female
  Weight: 100 kg

DRUGS (1)
  1. MIRENA [Suspect]
     Indication: CONTRACEPTION
     Dosage: CONTINUOUS DELIVERY
     Route: 015
     Dates: start: 20060301, end: 20090304

REACTIONS (4)
  - ALOPECIA [None]
  - MOOD SWINGS [None]
  - OEDEMA PERIPHERAL [None]
  - WEIGHT INCREASED [None]
